FAERS Safety Report 11368758 (Version 1)
Quarter: 2015Q3

REPORT INFORMATION
  Report Type: Spontaneous
  Country: CN (occurrence: CN)
  Receive Date: 20150812
  Receipt Date: 20150812
  Transmission Date: 20151125
  Serious: Yes (Other)
  Sender: FDA-Public Use
  Company Number: CN-ROCHE-1617550

PATIENT
  Age: 94 Year
  Sex: Male

DRUGS (3)
  1. CAPECITABINE. [Suspect]
     Active Substance: CAPECITABINE
     Route: 048
     Dates: start: 20031117
  2. CAPECITABINE. [Suspect]
     Active Substance: CAPECITABINE
     Route: 048
     Dates: start: 20040108, end: 200401
  3. CAPECITABINE. [Suspect]
     Active Substance: CAPECITABINE
     Indication: RECTAL ADENOCARCINOMA
     Dosage: 1000 MG IN THE MORNING, 1500 MG IN THE AFTERNOON
     Route: 048
     Dates: start: 20031027

REACTIONS (6)
  - Pyrexia [Unknown]
  - Dry skin [Unknown]
  - Pigmentation disorder [Unknown]
  - Heart rate increased [Unknown]
  - Acute kidney injury [Recovered/Resolved]
  - Lethargy [Unknown]

NARRATIVE: CASE EVENT DATE: 2004
